FAERS Safety Report 20539635 (Version 1)
Quarter: 2022Q1

REPORT INFORMATION
  Report Type: Report from Study
  Country: CN (occurrence: CN)
  Receive Date: 20220302
  Receipt Date: 20220302
  Transmission Date: 20220423
  Serious: Yes (Hospitalization)
  Sender: FDA-Public Use
  Company Number: CN-JNJFOC-20211052514

PATIENT
  Age: 56 Year
  Sex: Female
  Weight: 55 kg

DRUGS (14)
  1. AMIVANTAMAB [Suspect]
     Active Substance: AMIVANTAMAB
     Indication: Non-small cell lung cancer
     Dosage: RECEIVED AT THE TIME OF THE EVENT
     Route: 042
     Dates: start: 20211009, end: 20211009
  2. AMIVANTAMAB [Suspect]
     Active Substance: AMIVANTAMAB
     Route: 042
     Dates: start: 20211103
  3. ALBUMIN HUMAN [Concomitant]
     Active Substance: ALBUMIN HUMAN
     Indication: Hypoproteinaemia
     Route: 042
     Dates: start: 20211013, end: 20211014
  4. ALBUMIN HUMAN [Concomitant]
     Active Substance: ALBUMIN HUMAN
     Route: 042
     Dates: start: 20211022, end: 20211029
  5. ZINC OXIDE [Concomitant]
     Active Substance: ZINC OXIDE
     Indication: Eczema
     Route: 061
     Dates: start: 20211021
  6. FUROSEMIDE [Concomitant]
     Active Substance: FUROSEMIDE
     Indication: Oedema peripheral
     Dosage: INJECTION
     Route: 042
     Dates: start: 20211022
  7. MUPIROCIN [Concomitant]
     Active Substance: MUPIROCIN
     Indication: Paronychia
     Dates: start: 20210702
  8. POVIDONE-IODINE [Concomitant]
     Active Substance: POVIDONE-IODINE
     Indication: Paronychia
     Dates: start: 20210702
  9. POVIDONE-IODINE [Concomitant]
     Active Substance: POVIDONE-IODINE
     Indication: Eczema
     Dates: start: 20210716
  10. POLYMYXIN B [Concomitant]
     Active Substance: POLYMYXIN B
     Indication: Paronychia
     Dates: start: 20210716
  11. LEUCOGEN [Concomitant]
     Active Substance: LEUCOGEN
     Indication: White blood cell count decreased
     Route: 048
     Dates: start: 20211027, end: 20211029
  12. POTASSIUM CHLORIDE [Concomitant]
     Active Substance: POTASSIUM CHLORIDE
     Indication: Alanine aminotransferase increased
     Dosage: BUDAXIU (POTASSIUM CHLORIDE) SUSTAINED RELEASE TABLETS
     Route: 048
     Dates: start: 20211022, end: 20211029
  13. POTASSIUM CHLORIDE [Concomitant]
     Active Substance: POTASSIUM CHLORIDE
     Indication: Aspartate aminotransferase increased
  14. POTASSIUM CHLORIDE [Concomitant]
     Active Substance: POTASSIUM CHLORIDE
     Indication: Hypokalaemia

REACTIONS (1)
  - Hepatic function abnormal [Recovered/Resolved]
